FAERS Safety Report 9782114 (Version 1)
Quarter: 2013Q4

REPORT INFORMATION
  Report Type: Spontaneous
  Country: US (occurrence: US)
  Receive Date: 20131226
  Receipt Date: 20131226
  Transmission Date: 20140711
  Serious: Yes (Death, Hospitalization, Other)
  Sender: FDA-Public Use
  Company Number: US-BAXTER-2013BAX051005

PATIENT
  Sex: Female

DRUGS (4)
  1. DIANEAL LOW CALCIUM [Suspect]
     Indication: PERITONEAL DIALYSIS
     Route: 033
     Dates: start: 201308, end: 20131216
  2. DIANEAL LOW CALCIUM [Suspect]
     Indication: RENAL FAILURE CHRONIC
  3. DIANEAL LOW CALCIUM [Suspect]
     Indication: PERITONEAL DIALYSIS
     Route: 033
     Dates: start: 201308, end: 20131216
  4. DIANEAL LOW CALCIUM [Suspect]
     Indication: RENAL FAILURE CHRONIC

REACTIONS (11)
  - Multi-organ failure [Fatal]
  - Sepsis [Fatal]
  - Pneumonia [Fatal]
  - Renal failure chronic [Fatal]
  - Chronic obstructive pulmonary disease [Fatal]
  - Respiratory failure [Fatal]
  - Unresponsive to stimuli [Unknown]
  - Staphylococcal infection [Unknown]
  - Lung infection [Unknown]
  - Lung neoplasm [Unknown]
  - Pulmonary oedema [Unknown]
